FAERS Safety Report 5986663-8 (Version None)
Quarter: 2008Q4

REPORT INFORMATION
  Report Type: 
  Country: None (occurrence: None)
  Receive Date: 20081209
  Receipt Date: 20081202
  Transmission Date: 20090506
  Serious: No
  Sender: FDA-Public Use
  Company Number: JP-EISAI MEDICAL RESEARCH-E2090-00585-SPO-JP

PATIENT
  Sex: Male

DRUGS (7)
  1. EXCEGRAN [Suspect]
     Indication: EPILEPSY
     Route: 048
     Dates: end: 20081001
  2. EXCEGRAN [Suspect]
     Dosage: UNKNOWN
     Route: 048
     Dates: start: 20081001
  3. MYSTAN [Concomitant]
     Indication: EPILEPSY
     Route: 065
  4. TAKEPRON [Concomitant]
     Indication: GASTRIC ULCER
     Route: 065
  5. GASMOTIN [Concomitant]
     Indication: GASTRIC ULCER
     Route: 065
  6. SELBEX [Concomitant]
     Indication: GASTRIC ULCER
     Route: 065
  7. BIOFERMIN R [Concomitant]
     Indication: ENTEROCOLITIS
     Route: 065

REACTIONS (1)
  - CALCULUS URINARY [None]
